FAERS Safety Report 9014007 (Version 3)
Quarter: 2013Q1

REPORT INFORMATION
  Report Type: Report from Study
  Country: DE (occurrence: DE)
  Receive Date: 20130115
  Receipt Date: 20130314
  Transmission Date: 20140127
  Serious: Yes (Hospitalization)
  Sender: FDA-Public Use
  Company Number: DE-ROCHE-1179430

PATIENT
  Age: 52 Year
  Sex: Male

DRUGS (3)
  1. ZELBORAF [Suspect]
     Indication: MALIGNANT MELANOMA
     Route: 048
     Dates: start: 20121109, end: 20121221
  2. ZELBORAF [Suspect]
     Route: 048
     Dates: start: 20130114
  3. VOTUM [Concomitant]
     Indication: HYPERTENSION
     Route: 048

REACTIONS (1)
  - Renal failure acute [Recovered/Resolved]
